FAERS Safety Report 7960281-4 (Version None)
Quarter: 2011Q4

REPORT INFORMATION
  Report Type: 
  Country: None (occurrence: None)
  Receive Date: 20111201
  Receipt Date: 20111121
  Transmission Date: 20120403
  Serious: Yes (Hospitalization)
  Sender: FDA-Public Use
  Company Number: 2011HGS-002731

PATIENT
  Age: 49 Year
  Sex: Female
  Weight: 101.1521 kg

DRUGS (15)
  1. PREDNISONE TAB [Concomitant]
  2. FUROSEMIDE [Concomitant]
  3. REMERON [Concomitant]
  4. PROTONIX [Concomitant]
  5. RESTORIL [Concomitant]
  6. LEUCOVORIN SODIUM [Concomitant]
  7. VESICARE [Concomitant]
     Indication: URINARY TRACT DISORDER
  8. CELEXA [Concomitant]
  9. ZOFRAN [Concomitant]
  10. PLAQUENIL [Concomitant]
  11. RANITIDINE HCL (RANITIDINE HYDROCHLORIDE) [Concomitant]
  12. METHOTREXATE [Concomitant]
  13. BENLYSTA [Suspect]
     Indication: SYSTEMIC LUPUS ERYTHEMATOSUS
     Dosage: 1 IN 14 D, INTRAVENOUS DRIP
     Route: 041
     Dates: start: 20110915, end: 20110915
  14. FOLIC ACID [Concomitant]
  15. SYNTHROID [Concomitant]

REACTIONS (3)
  - HEPATIC STEATOSIS [None]
  - THROMBOTIC STROKE [None]
  - THALAMIC INFARCTION [None]
